FAERS Safety Report 6144654-0 (Version None)
Quarter: 2009Q2

REPORT INFORMATION
  Report Type: 
  Country: None (occurrence: None)
  Receive Date: 20090406
  Receipt Date: 20090331
  Transmission Date: 20091009
  Serious: Yes (Other)
  Sender: FDA-Public Use
  Company Number: A0776193A

PATIENT
  Age: 45 Year
  Sex: Male

DRUGS (3)
  1. LAMOTRIGINE [Suspect]
     Indication: BIPOLAR DISORDER
     Route: 048
  2. LEXAPRO [Concomitant]
  3. OTHER MEDICATIONS [Concomitant]

REACTIONS (2)
  - FURUNCLE [None]
  - STAPHYLOCOCCAL SEPSIS [None]
